FAERS Safety Report 24059776 (Version 2)
Quarter: 2025Q1

REPORT INFORMATION
  Report Type: Spontaneous
  Country: DE (occurrence: DE)
  Receive Date: 20240708
  Receipt Date: 20250305
  Transmission Date: 20250408
  Serious: Yes (Other)
  Sender: STRIDES
  Company Number: DE-STRIDES ARCOLAB LIMITED-2024SP007959

PATIENT
  Age: 41 Year
  Sex: Male

DRUGS (5)
  1. TACROLIMUS [Suspect]
     Active Substance: TACROLIMUS
     Indication: Antisynthetase syndrome
     Route: 048
  2. PREDNISOLONE [Suspect]
     Active Substance: PREDNISOLONE
     Indication: Antisynthetase syndrome
     Route: 048
  3. IMMUNE GLOBULIN NOS [Suspect]
     Active Substance: IMMUNE GLOBULIN NOS
     Indication: Antisynthetase syndrome
     Route: 042
  4. RITUXIMAB [Concomitant]
     Active Substance: RITUXIMAB
     Indication: Antisynthetase syndrome
     Route: 065
  5. RITUXIMAB [Concomitant]
     Active Substance: RITUXIMAB
     Route: 042

REACTIONS (3)
  - Disease recurrence [Unknown]
  - Treatment failure [Unknown]
  - Off label use [Unknown]
